FAERS Safety Report 4870762-8 (Version None)
Quarter: 2005Q4

REPORT INFORMATION
  Report Type: 
  Country: None (occurrence: None)
  Receive Date: 20051229
  Receipt Date: 20051216
  Transmission Date: 20060501
  Serious: Yes (Life-Threatening, Hospitalization)
  Sender: FDA-Public Use
  Company Number: 2005-01679

PATIENT
  Age: 64 Year
  Sex: Male
  Weight: 70 kg

DRUGS (3)
  1. VELCADE [Suspect]
     Indication: MULTIPLE MYELOMA
     Dosage: 2.30 MG, 2/WEEK, INTRAVENOUS : 1.00 MG, INTRAVENOUS
     Route: 042
     Dates: start: 20050621, end: 20050714
  2. VELCADE [Suspect]
     Indication: MULTIPLE MYELOMA
     Dosage: 2.30 MG, 2/WEEK, INTRAVENOUS : 1.00 MG, INTRAVENOUS
     Route: 042
     Dates: start: 20050809
  3. DURAGESIC-100 [Concomitant]

REACTIONS (6)
  - DIARRHOEA [None]
  - HERPES SIMPLEX [None]
  - HYPERTENSION [None]
  - INFECTION [None]
  - NAUSEA [None]
  - VOMITING [None]
